FAERS Safety Report 9918570 (Version 1)
Quarter: 2014Q1

REPORT INFORMATION
  Report Type: Spontaneous
  Country: US (occurrence: US)
  Receive Date: 20140224
  Receipt Date: 20140224
  Transmission Date: 20141002
  Serious: No
  Sender: FDA-Public Use
  Company Number: US-BIOGENIDEC-2014BI015321

PATIENT
  Sex: Male

DRUGS (7)
  1. TECFIDERA [Suspect]
     Indication: MULTIPLE SCLEROSIS
     Route: 048
     Dates: start: 20140109
  2. TECFIDERA [Suspect]
     Indication: MULTIPLE SCLEROSIS
     Route: 048
     Dates: end: 20140126
  3. ALEVE [Concomitant]
  4. CRESTOR [Concomitant]
  5. ECOTRIN [Concomitant]
  6. LISINOPRIL [Concomitant]
  7. PROVENTIL [Concomitant]

REACTIONS (7)
  - Influenza like illness [Unknown]
  - Back pain [Unknown]
  - Musculoskeletal chest pain [Unknown]
  - Migraine [Unknown]
  - Local swelling [Unknown]
  - Nausea [Unknown]
  - Abdominal pain [Unknown]
